FAERS Safety Report 5120746-X (Version None)
Quarter: 2006Q4

REPORT INFORMATION
  Report Type: 
  Country: None (occurrence: None)
  Receive Date: 20061003
  Receipt Date: 20061003
  Transmission Date: 20070319
  Serious: No
  Sender: FDA-Public Use
  Company Number: None

PATIENT
  Age: 5 Year
  Sex: Female
  Weight: 17.46 kg

DRUGS (2)
  1. DESMOPRESSIN 0.1 MG TAB BARR NDC 00555 0232 02 [Suspect]
     Indication: DIABETES INSIPIDUS
     Dosage: 0.1 MG QD PO
     Route: 048
     Dates: start: 20060930
  2. DESMOPRESSIN 0.1 MG TAB BARR NDC 00555 0232 02 [Suspect]
     Indication: DIABETES INSIPIDUS
     Dosage: 0.1 MG QD PO
     Route: 048
     Dates: start: 20061001

REACTIONS (1)
  - POLLAKIURIA [None]
